FAERS Safety Report 20559721 (Version 1)
Quarter: 2022Q1

REPORT INFORMATION
  Report Type: Spontaneous
  Country: US (occurrence: None)
  Receive Date: 20220306
  Receipt Date: 20220306
  Transmission Date: 20220423
  Serious: No
  Sender: FDA-Public Use
  Company Number: None

PATIENT
  Age: 72 Year
  Sex: Female
  Weight: 110.25 kg

DRUGS (21)
  1. EVUSHELD [Suspect]
     Active Substance: CILGAVIMAB\TIXAGEVIMAB
     Indication: COVID-19 prophylaxis
     Dosage: OTHER QUANTITY : 2 INJECTION(S);?OTHER FREQUENCY : ONCE EVERY 6 MONTH;?
     Route: 030
     Dates: start: 20220211, end: 20220212
  2. VITAMIN D [Concomitant]
     Active Substance: VITAMIN D NOS
  3. NADOLOL [Concomitant]
  4. AMLODIPINE BESYLATE [Concomitant]
     Active Substance: AMLODIPINE BESYLATE
  5. GAMUNEX [Concomitant]
     Active Substance: HUMAN IMMUNOGLOBULIN G
  6. VALACYCLOVIR HYDROCHLORIDE [Concomitant]
     Active Substance: VALACYCLOVIR HYDROCHLORIDE
  7. XIFAXAN [Concomitant]
     Active Substance: RIFAXIMIN
  8. LEVOTHYROXINE SODIUM [Concomitant]
     Active Substance: LEVOTHYROXINE SODIUM
  9. EPLERENONE [Concomitant]
     Active Substance: EPLERENONE
  10. ROSUVASTATIN CALCIUM [Concomitant]
  11. VITAMIN B12 [Concomitant]
     Active Substance: CYANOCOBALAMIN
  12. COENZYME Q10 [Concomitant]
     Active Substance: DIETARY SUPPLEMENT\UBIDECARENONE
  13. CLARITIN [Concomitant]
     Active Substance: LORATADINE
  14. CVS Probiotic [Concomitant]
  15. ALEVE [Concomitant]
     Active Substance: NAPROXEN SODIUM
  16. NexIUM [Concomitant]
  17. Multiple Vitamin [Concomitant]
  18. Vitamin C [Concomitant]
  19. BENADRYL ALLERGY [Concomitant]
     Active Substance: DIPHENHYDRAMINE HYDROCHLORIDE
  20. Triple Omega-3-6-9 [Concomitant]
  21. ASPIRIN [Concomitant]
     Active Substance: ASPIRIN

REACTIONS (3)
  - Fatigue [None]
  - Cough [None]
  - Rhinorrhoea [None]

NARRATIVE: CASE EVENT DATE: 20220213
